FAERS Safety Report 14573892 (Version 7)
Quarter: 2018Q3

REPORT INFORMATION
  Report Type: Spontaneous
  Country: US (occurrence: US)
  Receive Date: 20180226
  Receipt Date: 20180723
  Transmission Date: 20181010
  Serious: Yes (Hospitalization, Other)
  Sender: FDA-Public Use
  Company Number: US-ELI_LILLY_AND_COMPANY-US201802008530

PATIENT
  Age: 55 Year
  Sex: Female

DRUGS (10)
  1. CYMBALTA [Suspect]
     Active Substance: DULOXETINE HYDROCHLORIDE
     Dosage: 30 MG, DAILY
     Route: 048
     Dates: start: 2017, end: 2017
  2. CYMBALTA [Suspect]
     Active Substance: DULOXETINE HYDROCHLORIDE
     Dosage: 60 MG, DAILY
     Route: 048
  3. TOPAMAX [Suspect]
     Active Substance: TOPIRAMATE
     Indication: SEIZURE
     Dosage: UNK, UNKNOWN
     Route: 065
  4. CYMBALTA [Suspect]
     Active Substance: DULOXETINE HYDROCHLORIDE
     Indication: BACK PAIN
     Dosage: 30 MG, DAILY
     Route: 048
     Dates: start: 1998
  5. CYMBALTA [Suspect]
     Active Substance: DULOXETINE HYDROCHLORIDE
     Dosage: 120 MG, DAILY
     Route: 048
     Dates: end: 2017
  6. CYMBALTA [Suspect]
     Active Substance: DULOXETINE HYDROCHLORIDE
     Dosage: 50 MG, DAILY
     Route: 048
  7. KEPPRA [Suspect]
     Active Substance: LEVETIRACETAM
     Indication: SEIZURE
     Dosage: UNK, UNKNOWN
     Route: 065
  8. CYMBALTA [Suspect]
     Active Substance: DULOXETINE HYDROCHLORIDE
     Dosage: 60 MG, DAILY
     Route: 048
     Dates: start: 2017
  9. CYMBALTA [Suspect]
     Active Substance: DULOXETINE HYDROCHLORIDE
     Dosage: 60 MG, DAILY
     Route: 048
     Dates: start: 2017
  10. CYMBALTA [Suspect]
     Active Substance: DULOXETINE HYDROCHLORIDE
     Dosage: 60 MG, DAILY
     Route: 048
     Dates: start: 2017

REACTIONS (39)
  - Suicidal ideation [Not Recovered/Not Resolved]
  - Self-injurious ideation [Not Recovered/Not Resolved]
  - Drug withdrawal syndrome [Not Recovered/Not Resolved]
  - Depression [Not Recovered/Not Resolved]
  - Depression [Not Recovered/Not Resolved]
  - Anger [Not Recovered/Not Resolved]
  - Gait disturbance [Not Recovered/Not Resolved]
  - Emotional distress [Unknown]
  - Rheumatoid arthritis [Not Recovered/Not Resolved]
  - Eye contusion [Unknown]
  - Dysphemia [Unknown]
  - Weight decreased [Recovered/Resolved]
  - Feeling abnormal [Recovered/Resolved]
  - Fall [Recovered/Resolved]
  - Paraesthesia [Not Recovered/Not Resolved]
  - Anxiety [Not Recovered/Not Resolved]
  - Language disorder [Not Recovered/Not Resolved]
  - Suicide attempt [Not Recovered/Not Resolved]
  - Memory impairment [Not Recovered/Not Resolved]
  - Anxiety [Not Recovered/Not Resolved]
  - Tinnitus [Not Recovered/Not Resolved]
  - Swelling face [Unknown]
  - Back disorder [Recovered/Resolved]
  - Pain [Recovered/Resolved]
  - Feeling abnormal [Not Recovered/Not Resolved]
  - Drug dose omission [Unknown]
  - Nephrolithiasis [Unknown]
  - Seizure [Not Recovered/Not Resolved]
  - Osteoarthritis [Not Recovered/Not Resolved]
  - Crying [Not Recovered/Not Resolved]
  - Agitation [Not Recovered/Not Resolved]
  - Feeling abnormal [Not Recovered/Not Resolved]
  - Drug ineffective [Unknown]
  - Dysphemia [Not Recovered/Not Resolved]
  - Feeling abnormal [Recovered/Resolved]
  - Vertigo [Recovered/Resolved]
  - Insomnia [Not Recovered/Not Resolved]
  - Malaise [Not Recovered/Not Resolved]
  - Disturbance in attention [Not Recovered/Not Resolved]

NARRATIVE: CASE EVENT DATE: 2010
